FAERS Safety Report 7768008-6 (Version None)
Quarter: 2011Q3

REPORT INFORMATION
  Report Type: 
  Country: None (occurrence: None)
  Receive Date: 20110922
  Receipt Date: 20110715
  Transmission Date: 20111222
  Serious: No
  Sender: FDA-Public Use
  Company Number: US-ASTRAZENECA-2011SE42281

PATIENT
  Age: 36 Year
  Sex: Male

DRUGS (1)
  1. SEROQUEL XR [Suspect]
     Indication: BIPOLAR DISORDER
     Route: 048
     Dates: start: 20090101

REACTIONS (5)
  - TREATMENT NONCOMPLIANCE [None]
  - IMPULSE-CONTROL DISORDER [None]
  - MANIA [None]
  - DRUG DOSE OMISSION [None]
  - ANXIETY [None]
